FAERS Safety Report 13674061 (Version 1)
Quarter: 2017Q2

REPORT INFORMATION
  Report Type: Spontaneous
  Country: US (occurrence: US)
  Receive Date: 20170621
  Receipt Date: 20170621
  Transmission Date: 20170830
  Serious: Yes (Other)
  Sender: FDA-Public Use
  Company Number: US-BRISTOL-MYERS SQUIBB COMPANY-BMS-2017-053795

PATIENT
  Age: 68 Year
  Sex: Female

DRUGS (1)
  1. ABILIFY [Suspect]
     Active Substance: ARIPIPRAZOLE
     Indication: PRODUCT USED FOR UNKNOWN INDICATION
     Dosage: 10 MG, QD
     Route: 065
     Dates: start: 2003

REACTIONS (6)
  - Bipolar disorder [Recovered/Resolved]
  - Anxiety [Not Recovered/Not Resolved]
  - Thinking abnormal [Recovered/Resolved]
  - Glucose tolerance impaired [Not Recovered/Not Resolved]
  - Paranoia [Recovered/Resolved]
  - Respiratory disorder [Unknown]
